FAERS Safety Report 14299423 (Version 5)
Quarter: 2019Q3

REPORT INFORMATION
  Report Type: Report from Study
  Country: CA (occurrence: CA)
  Receive Date: 20171219
  Receipt Date: 20190823
  Transmission Date: 20191004
  Serious: Yes (Hospitalization, Other)
  Sender: FDA-Public Use
  Company Number: CA-ROCHE-1659599

PATIENT
  Age: 51 Year
  Sex: Male

DRUGS (33)
  1. METHYLPREDNISOLONE. [Concomitant]
     Active Substance: METHYLPREDNISOLONE
     Indication: PREMEDICATION
     Route: 042
     Dates: start: 20151022
  2. FUROSEMIDE. [Concomitant]
     Active Substance: FUROSEMIDE
  3. PERINDOPRIL [Concomitant]
     Active Substance: PERINDOPRIL
  4. TERAZOSIN [Concomitant]
     Active Substance: TERAZOSIN HYDROCHLORIDE
  5. MYCOPHENOLATE MOFETIL. [Concomitant]
     Active Substance: MYCOPHENOLATE MOFETIL
     Route: 048
  6. DIPHENHYDRAMINE. [Concomitant]
     Active Substance: DIPHENHYDRAMINE
     Indication: PREMEDICATION
     Route: 048
     Dates: start: 20151022
  7. ALMAGEL [ALUMINIUM HYDROXIDE;MAGNESIUM HYDROXIDE] [Concomitant]
  8. PANTOPRAZOLE [Concomitant]
     Active Substance: PANTOPRAZOLE
  9. XARELTO [Concomitant]
     Active Substance: RIVAROXABAN
  10. ACETAMINOPHEN. [Concomitant]
     Active Substance: ACETAMINOPHEN
     Route: 048
     Dates: start: 20161031
  11. PLAQUENIL [Concomitant]
     Active Substance: HYDROXYCHLOROQUINE SULFATE
  12. BISOPROLOL [Concomitant]
     Active Substance: BISOPROLOL
  13. PREDNISONE. [Concomitant]
     Active Substance: PREDNISONE
  14. SODIUM BICARBONATE. [Concomitant]
     Active Substance: SODIUM BICARBONATE
  15. RITUXAN [Suspect]
     Active Substance: RITUXIMAB
     Indication: RHEUMATOID ARTHRITIS
     Dosage: HE RECEIVED RITUXIMAB INFUSION ON 31/OCT/2016
     Route: 042
     Dates: start: 20151022
  16. ELIQUIS [Concomitant]
     Active Substance: APIXABAN
  17. ACETAMINOPHEN. [Concomitant]
     Active Substance: ACETAMINOPHEN
     Indication: PREMEDICATION
     Route: 048
     Dates: start: 20151022, end: 20161031
  18. FOLIC ACID. [Concomitant]
     Active Substance: FOLIC ACID
  19. AMLODIPINE [Concomitant]
     Active Substance: AMLODIPINE BESYLATE
  20. DOMPERIDONE [Concomitant]
     Active Substance: DOMPERIDONE
  21. HYDROMORPHONE [Concomitant]
     Active Substance: HYDROMORPHONE
  22. XARELTO [Concomitant]
     Active Substance: RIVAROXABAN
  23. CALCIUM [Concomitant]
     Active Substance: CALCIUM
  24. LORAZEPAM. [Concomitant]
     Active Substance: LORAZEPAM
  25. SILVER SULFADIAZENE [Concomitant]
     Active Substance: SILVER SULFADIAZINE
  26. SPIRONOLACTONE. [Concomitant]
     Active Substance: SPIRONOLACTONE
  27. SULFASALAZINE. [Concomitant]
     Active Substance: SULFASALAZINE
  28. METHOTREXATE. [Concomitant]
     Active Substance: METHOTREXATE
  29. PERINDOPRIL [Concomitant]
     Active Substance: PERINDOPRIL
  30. CYMBALTA [Concomitant]
     Active Substance: DULOXETINE HYDROCHLORIDE
  31. HYDROMORPH CONTIN [Concomitant]
     Active Substance: HYDROMORPHONE
  32. RELAXA [MACROGOL 3350] [Concomitant]
  33. SULFATRIM [Concomitant]
     Active Substance: SULFAMETHOXAZOLE\TRIMETHOPRIM

REACTIONS (26)
  - Oropharyngeal pain [Unknown]
  - Back pain [Unknown]
  - Infusion related reaction [Recovered/Resolved]
  - Oral herpes [Not Recovered/Not Resolved]
  - Nausea [Recovered/Resolved]
  - Blood pressure increased [Unknown]
  - Pain in extremity [Not Recovered/Not Resolved]
  - Headache [Unknown]
  - Heart rate decreased [Unknown]
  - Oropharyngeal pain [Recovered/Resolved]
  - Rheumatoid arthritis [Recovered/Resolved]
  - Splinter [Unknown]
  - Heart rate decreased [Unknown]
  - Pericarditis [Unknown]
  - Necrotising fasciitis [Recovered/Resolved]
  - Blood uric acid increased [Not Recovered/Not Resolved]
  - Renal impairment [Unknown]
  - Dysphonia [Recovered/Resolved]
  - Mouth ulceration [Recovering/Resolving]
  - Blood pressure fluctuation [Unknown]
  - Pneumonia [Unknown]
  - Renal disorder [Unknown]
  - Musculoskeletal stiffness [Unknown]
  - Blood pressure systolic abnormal [Unknown]
  - Gastroenteritis [Unknown]
  - Diarrhoea [Recovered/Resolved]

NARRATIVE: CASE EVENT DATE: 20151109
